FAERS Safety Report 18125069 (Version 1)
Quarter: 2020Q3

REPORT INFORMATION
  Report Type: Report from Study
  Country: MX (occurrence: MX)
  Receive Date: 20200807
  Receipt Date: 20200807
  Transmission Date: 20201103
  Serious: Yes (Other)
  Sender: FDA-Public Use
  Company Number: NVSC2020MX219888

PATIENT
  Age: 35 Year
  Sex: Female
  Weight: 71.21 kg

DRUGS (4)
  1. PRENATAL VITAMINS [Concomitant]
     Active Substance: VITAMINS
     Indication: PREGNANCY
     Dosage: UNK
     Route: 048
     Dates: start: 20200708
  2. GESTAGENO [Concomitant]
     Indication: IN VITRO FERTILISATION
     Dosage: 200 MG
     Route: 048
     Dates: start: 20200715
  3. FOLIC ACID. [Concomitant]
     Active Substance: FOLIC ACID
     Indication: PREGNANCY
     Dosage: 4 MG
     Route: 048
     Dates: start: 20200715
  4. GILENYA [Suspect]
     Active Substance: FINGOLIMOD HYDROCHLORIDE
     Indication: MULTIPLE SCLEROSIS
     Dosage: 0.5 MG
     Route: 048
     Dates: start: 2010, end: 20200625

REACTIONS (3)
  - Maternal exposure during pregnancy [Unknown]
  - Thyroid hormones decreased [Unknown]
  - Urinary tract infection [Unknown]

NARRATIVE: CASE EVENT DATE: 20200717
